FAERS Safety Report 9158396 (Version 1)
Quarter: 2013Q1

REPORT INFORMATION
  Report Type: Spontaneous
  Country: FR (occurrence: None)
  Receive Date: 20130213
  Receipt Date: 20130213
  Transmission Date: 20140127
  Serious: Yes (Other)
  Sender: FDA-Public Use
  Company Number: ENTC2013-0042

PATIENT
  Age: 68 Year
  Sex: Male

DRUGS (1)
  1. STALEVO (LEVODOPA, CARBIDOPA, ENTACAPONE) [Suspect]
     Indication: PARKINSON^S DISEASE
     Dosage: 3 DF QD; 50/12.5 / 200 / 50/ 200  MG
     Route: 048

REACTIONS (4)
  - Pathological gambling [None]
  - Somnolence [None]
  - Fatigue [None]
  - Motor dysfunction [None]
